FAERS Safety Report 23590699 (Version 2)
Quarter: 2024Q1

REPORT INFORMATION
  Report Type: Report from Study
  Country: RU (occurrence: RU)
  Receive Date: 20240304
  Receipt Date: 20240307
  Transmission Date: 20240410
  Serious: Yes (Hospitalization)
  Sender: FDA-Public Use
  Company Number: RU-002147023-NVSC2024RU028446

PATIENT
  Age: 0 Year
  Sex: Female
  Weight: 4.3 kg

DRUGS (3)
  1. ZOLGENSMA [Suspect]
     Active Substance: ONASEMNOGENE ABEPARVOVEC-XIOI
     Indication: Spinal muscular atrophy
     Dosage: 25.3 UNK, ONCE/SINGLE
     Route: 042
     Dates: start: 20240130, end: 20240130
  2. CHOLECALCIFEROL [Concomitant]
     Active Substance: CHOLECALCIFEROL
     Indication: Product used for unknown indication
     Dosage: 1500 IU, QD
     Route: 048
     Dates: start: 20240128
  3. PREDNISOLONE [Concomitant]
     Active Substance: PREDNISOLONE
     Indication: Product used for unknown indication
     Dosage: 0.5 MG, QD (1 TABLET), EVERY DAY IN THE MORNING HOURS AFTER LIGHT BREAKFAST (1 MG/KG/DAY)
     Route: 048
     Dates: start: 20230129

REACTIONS (3)
  - Bronchitis [Recovered/Resolved]
  - Vomiting [Recovered/Resolved]
  - Body temperature increased [Recovered/Resolved]

NARRATIVE: CASE EVENT DATE: 20240202
